FAERS Safety Report 11115559 (Version 1)
Quarter: 2015Q2

REPORT INFORMATION
  Report Type: Spontaneous
  Country: US (occurrence: US)
  Receive Date: 20150515
  Receipt Date: 20150515
  Transmission Date: 20150821
  Serious: Yes (Other)
  Sender: FDA-Public Use
  Company Number: US-BAYER-2015-213869

PATIENT
  Age: 23 Year
  Sex: Female
  Weight: 63.49 kg

DRUGS (1)
  1. ALKA-SELTZER HEARTBURN RELIEFCHEWS [Suspect]
     Active Substance: CALCIUM CARBONATE
     Dosage: 100 DF, UNK
     Route: 048
     Dates: start: 201412

REACTIONS (3)
  - Drug abuse [Unknown]
  - Intentional product misuse [None]
  - Drug dependence [Unknown]

NARRATIVE: CASE EVENT DATE: 201412
